FAERS Safety Report 5836713-4 (Version None)
Quarter: 2008Q3

REPORT INFORMATION
  Report Type: 
  Country: None (occurrence: None)
  Receive Date: 20080805
  Receipt Date: 20080729
  Transmission Date: 20090109
  Serious: Yes (Death)
  Sender: FDA-Public Use
  Company Number: 2008AL004891

PATIENT
  Age: 70 Year
  Sex: Male

DRUGS (3)
  1. DIGOXIN [Suspect]
     Indication: ATRIAL FIBRILLATION
     Dosage: 0.25MG DAILY PO
     Route: 048
     Dates: end: 20080330
  2. LASIX [Concomitant]
  3. COUMADIN [Concomitant]

REACTIONS (1)
  - VENTRICULAR FIBRILLATION [None]
